FAERS Safety Report 23070874 (Version 5)
Quarter: 2023Q4

REPORT INFORMATION
  Report Type: Spontaneous
  Country: US (occurrence: US)
  Receive Date: 20231016
  Receipt Date: 20231221
  Transmission Date: 20240109
  Serious: Yes (Hospitalization)
  Sender: FDA-Public Use
  Company Number: US-PFIZER INC-PV202300169498

PATIENT
  Age: 84 Year
  Sex: Female

DRUGS (1)
  1. IBRANCE [Suspect]
     Active Substance: PALBOCICLIB
     Dosage: 125 MG, CYCLIC (DAILY ON DAYS 1-21 FOLLOWED BY 7 DAYS OFF FOR EACH 28 DAY CYCLE)
     Route: 048

REACTIONS (2)
  - Full blood count abnormal [Unknown]
  - White blood cell count decreased [Unknown]
